FAERS Safety Report 5968009-4 (Version None)
Quarter: 2008Q4

REPORT INFORMATION
  Report Type: 
  Country: None (occurrence: None)
  Receive Date: 20081121
  Receipt Date: 20081113
  Transmission Date: 20090506
  Serious: Yes (Other)
  Sender: FDA-Public Use
  Company Number: 2008JP005394

PATIENT
  Age: 14 Year
  Sex: Male

DRUGS (6)
  1. PROGRAF [Suspect]
     Indication: CORD BLOOD TRANSPLANT THERAPY
  2. METHOTREXATE [Concomitant]
  3. FLUDARABINE PHOSPHATE [Concomitant]
  4. CYCLOPHOSPHAMIDE [Concomitant]
  5. PREDNISOLONE [Concomitant]
  6. IMATINIB MESYLATE [Concomitant]

REACTIONS (2)
  - GLOMERULOSCLEROSIS [None]
  - RENAL FAILURE CHRONIC [None]
